FAERS Safety Report 7951896-8 (Version None)
Quarter: 2011Q4

REPORT INFORMATION
  Report Type: 
  Country: None (occurrence: None)
  Receive Date: 20111201
  Receipt Date: 20111201
  Transmission Date: 20120403
  Serious: Yes (Life-Threatening, Other)
  Sender: FDA-Public Use
  Company Number: None

PATIENT
  Age: 19 Year
  Sex: Male
  Weight: 106.59 kg

DRUGS (1)
  1. CHANTIX [Suspect]
     Indication: SMOKING CESSATION THERAPY
     Dosage: .5 MG/1 MG
     Route: 048
     Dates: start: 20111101, end: 20111128

REACTIONS (5)
  - MOOD SWINGS [None]
  - INSOMNIA [None]
  - ANGER [None]
  - AGGRESSION [None]
  - NIGHTMARE [None]
